FAERS Safety Report 7910707-7 (Version None)
Quarter: 2011Q4

REPORT INFORMATION
  Report Type: 
  Country: None (occurrence: None)
  Receive Date: 20111111
  Receipt Date: 20111102
  Transmission Date: 20120403
  Serious: Yes (Death, Hospitalization, Other)
  Sender: FDA-Public Use
  Company Number: US-AMGEN-USASP2011057106

PATIENT
  Age: 87 Year
  Sex: Male

DRUGS (48)
  1. ELIGARD [Concomitant]
  2. HEPARIN [Concomitant]
     Dosage: UNK
  3. DOCUSATE [Concomitant]
  4. BACLOFEN [Concomitant]
     Dosage: 2 MG, UNK
  5. CALCIUM CARBONATE [Concomitant]
  6. MOMETASONE FUROATE [Concomitant]
  7. HEPARIN [Concomitant]
     Dosage: UNK
  8. METOCLOPRAMID                      /00041901/ [Concomitant]
     Dosage: 4 MG, UNK
  9. NITROGLYCERIN [Concomitant]
  10. ASPIRIN [Concomitant]
  11. IPRATROPIUM BROMIDE AND ALBUTEROL SULFATE [Concomitant]
  12. POVIDONE IODINE [Concomitant]
     Dosage: 2 %, UNK
  13. VITAMIN D [Concomitant]
  14. VITAMIN D [Concomitant]
     Dosage: 1 IU, QD
  15. COSOPT [Concomitant]
  16. AMIODARONE HCL [Concomitant]
  17. ONDANSETRON [Concomitant]
  18. GUAIFENESIN LA [Concomitant]
     Dosage: 2 MG, UNK
  19. ELIGARD [Concomitant]
     Dosage: 1 MG, UNK
  20. POLYETHYLENE GLYCOL [Concomitant]
     Dosage: 2 G, QD
  21. LUMIGAN [Concomitant]
     Dosage: 1 GTT, QD
  22. PANTOPRAZOLE [Concomitant]
     Dosage: 1 MG, UNK
  23. GUAIFENESIN LA [Concomitant]
  24. DOXYCYCLINE [Concomitant]
  25. LEVOFLOXACIN [Concomitant]
  26. BISACODYL ACTAVIS [Concomitant]
     Dosage: 1 MG, UNK
     Route: 054
  27. HYDROCODONE/ACETAMINOPHEN          /00607101/ [Concomitant]
     Dosage: 4 MG, QD
  28. IPRATROPIUM BROMIDE AND ALBUTEROL SULFATE [Concomitant]
     Dosage: 1 ML, UNK
  29. MOMETASONE FUROATE [Concomitant]
     Dosage: 1 MUG, UNK
  30. XGEVA [Suspect]
     Indication: METASTASES TO BONE
     Dosage: 120 MG, Q4WK
     Dates: start: 20110214
  31. XGEVA [Suspect]
     Dosage: 120 MG, Q4WK
     Dates: start: 20110324
  32. ELIGARD [Concomitant]
  33. ONDANSETRON [Concomitant]
     Dosage: 1 MG, UNK
  34. COSOPT [Concomitant]
     Dosage: 1 GTT, BID
  35. LUMIGAN [Concomitant]
  36. AMOXICILLIN AND CLAVULANATE POTASSIUM [Concomitant]
     Dosage: 2 MG, UNK
  37. IPRATROPIUM BROMIDE [Concomitant]
     Dosage: 1 MG, UNK
  38. IPRATROPIUM BROMIDE [Concomitant]
  39. CALCIUM CARBONATE [Concomitant]
     Dosage: 2 MG, UNK
  40. DOCUSATE [Concomitant]
     Dosage: 1 MG, UNK
  41. LEVOFLOXACIN [Concomitant]
     Dosage: 1 MG, UNK
  42. SENNA                              /00142201/ [Concomitant]
     Dosage: 1 MG, UNK
  43. POLYETHYLENE GLYCOL [Concomitant]
  44. AMIODARONE HCL [Concomitant]
     Dosage: 1 MG, QD
  45. NITROGLYCERIN [Concomitant]
     Dosage: 1 MG, UNK
  46. DOXYCYCLINE [Concomitant]
     Dosage: 2 MG, UNK
  47. ASPIRIN [Concomitant]
     Dosage: 1 MG, UNK
  48. BACLOFEN [Concomitant]

REACTIONS (5)
  - POSTOPERATIVE WOUND COMPLICATION [None]
  - PULMONARY OEDEMA [None]
  - DEATH [None]
  - CARDIAC FAILURE CONGESTIVE [None]
  - DECUBITUS ULCER [None]
